FAERS Safety Report 22725148 (Version 6)
Quarter: 2023Q4

REPORT INFORMATION
  Report Type: Spontaneous
  Country: US (occurrence: US)
  Receive Date: 20230719
  Receipt Date: 20231117
  Transmission Date: 20240110
  Serious: No
  Sender: FDA-Public Use
  Company Number: US-PFIZER INC-202300251887

PATIENT
  Age: 15 Year
  Sex: Male
  Weight: 50.8 kg

DRUGS (3)
  1. GENOTROPIN [Suspect]
     Active Substance: SOMATROPIN
     Indication: Growth hormone deficiency
     Dosage: 2.6 MG, WEEKLY (2.6MG 6 DAYS A WEEK)
  2. GENOTROPIN [Suspect]
     Active Substance: SOMATROPIN
     Dosage: 2.2 MG, 6 DAYS A WEEK
  3. GENOTROPIN [Suspect]
     Active Substance: SOMATROPIN
     Dosage: 2.8 MG

REACTIONS (6)
  - Drug dose omission by device [Unknown]
  - Expired device used [Unknown]
  - Device delivery system issue [Unknown]
  - Device breakage [Unknown]
  - Device mechanical issue [Unknown]
  - Device information output issue [Unknown]

NARRATIVE: CASE EVENT DATE: 20230710
